FAERS Safety Report 24694934 (Version 1)
Quarter: 2024Q4

REPORT INFORMATION
  Report Type: Spontaneous
  Country: US (occurrence: None)
  Receive Date: 20241203
  Receipt Date: 20241203
  Transmission Date: 20250114
  Serious: Yes (Death)
  Sender: Public
  Company Number: None

PATIENT
  Age: 65 Year
  Sex: Female
  Weight: 58.25 kg

DRUGS (11)
  1. CAPECITABINE [Suspect]
     Active Substance: CAPECITABINE
     Indication: Breast cancer female
     Dosage: OTHER FREQUENCY : BID 7 DAYS ON 7 DAYS OFF ;?
     Route: 048
     Dates: start: 20241007, end: 20241116
  2. vitamin B complex, Ganoderma Lucidum [Concomitant]
  3. magnesium glycinate 100 mg, turmeric [Concomitant]
  4. OMEGA 3-6-9 FATTY ACIDS, ZINC ACETATE [Concomitant]
  5. Lactobacillus acidophilus ,L-Carnosine [Concomitant]
  6. Bifidobacterium infantis, cholecalciferol [Concomitant]
  7. LORazepam, calcium carbonate, vitamin C [Concomitant]
  8. ondansetron, prochlorperazine [Concomitant]
  9. FULVESTRANT [Concomitant]
     Active Substance: FULVESTRANT
  10. LATANOPROST [Concomitant]
     Active Substance: LATANOPROST
  11. Xiidra 5 % [Concomitant]

REACTIONS (6)
  - Malignant neoplasm progression [None]
  - Metastases to spine [None]
  - Metastases to abdominal cavity [None]
  - Metastases to lung [None]
  - Metastases to pelvis [None]
  - Metastases to liver [None]

NARRATIVE: CASE EVENT DATE: 20241127
